FAERS Safety Report 6983253-5 (Version None)
Quarter: 2010Q3

REPORT INFORMATION
  Report Type: 
  Country: None (occurrence: None)
  Receive Date: 20100914
  Receipt Date: 20100721
  Transmission Date: 20110219
  Serious: No
  Sender: FDA-Public Use
  Company Number: US-PFIZER INC-2010091694

PATIENT
  Sex: Male

DRUGS (3)
  1. LYRICA [Suspect]
     Indication: NEUROPATHY PERIPHERAL
     Dosage: 75 MG, 2X/DAY
     Route: 048
     Dates: start: 20100720
  2. MIRAPEX [Concomitant]
     Indication: PARKINSON'S DISEASE
     Dosage: 6 TABLETS DAILY
     Route: 048
  3. CARBIDOPA/ENTACAPONE/LEVODOPA [Concomitant]
     Indication: PARKINSON'S DISEASE
     Dosage: UNK
     Dates: start: 20100101

REACTIONS (2)
  - BALANCE DISORDER [None]
  - DIZZINESS [None]
